FAERS Safety Report 24914271 (Version 1)
Quarter: 2025Q1

REPORT INFORMATION
  Report Type: Spontaneous
  Country: IT (occurrence: IT)
  Receive Date: 20250202
  Receipt Date: 20250202
  Transmission Date: 20250409
  Serious: Yes (Hospitalization, Disabling)
  Sender: NOVARTIS
  Company Number: None

PATIENT
  Age: 56 Year
  Sex: Female
  Weight: 92 kg

DRUGS (1)
  1. COSENTYX [Suspect]
     Active Substance: SECUKINUMAB
     Indication: Product used for unknown indication
     Dosage: 300 MG, Q4W (300MG ALLE SETTIMANE 0, 1, 2, 3, 4, SEGUITO DA 300MG OGNI 4 SETTIMANE)
     Route: 058

REACTIONS (1)
  - Diabetic foot [Recovered/Resolved with Sequelae]

NARRATIVE: CASE EVENT DATE: 20240701
